FAERS Safety Report 5144463-5 (Version None)
Quarter: 2006Q4

REPORT INFORMATION
  Report Type: 
  Country: None (occurrence: None)
  Receive Date: 20061030
  Receipt Date: 20061023
  Transmission Date: 20070319
  Serious: Yes (Other)
  Sender: FDA-Public Use
  Company Number: 163-21880-06090326

PATIENT
  Age: 43 Year
  Sex: Female

DRUGS (14)
  1. REVLIMID [Suspect]
     Indication: MULTIPLE MYELOMA
     Dosage: 25 MG, 1 IN 1 D, ORAL; SEE IMAGE
     Route: 048
     Dates: start: 20060825, end: 20060901
  2. REVLIMID [Suspect]
     Indication: MULTIPLE MYELOMA
     Dosage: 25 MG, 1 IN 1 D, ORAL; SEE IMAGE
     Route: 048
     Dates: start: 20060901, end: 20061001
  3. REVLIMID [Suspect]
     Indication: MULTIPLE MYELOMA
     Dosage: 25 MG, 1 IN 1 D, ORAL; SEE IMAGE
     Route: 048
     Dates: start: 20061001
  4. COUMADIN [Concomitant]
  5. AREDIA [Concomitant]
  6. CELEXA [Concomitant]
  7. AMBIEN [Concomitant]
  8. ATIVAN [Concomitant]
  9. DECADRON [Concomitant]
  10. VINCRISTINE [Concomitant]
  11. ADRIAMYCIN PFS [Concomitant]
  12. CYTOXAN [Concomitant]
  13. ETOPOSIDE [Concomitant]
  14. MELPHALAN (MELPHALAN) [Concomitant]

REACTIONS (2)
  - BLOOD HUMAN CHORIONIC GONADOTROPIN INCREASED [None]
  - FATIGUE [None]
